APPROVED DRUG PRODUCT: CROMOLYN SODIUM
Active Ingredient: CROMOLYN SODIUM
Strength: 4%
Dosage Form/Route: SOLUTION/DROPS;OPHTHALMIC
Application: A075615 | Product #001
Applicant: APOTEX INC
Approved: Jan 26, 2001 | RLD: No | RS: No | Type: DISCN